FAERS Safety Report 5574055-5 (Version None)
Quarter: 2007Q4

REPORT INFORMATION
  Report Type: 
  Country: None (occurrence: None)
  Receive Date: 20071221
  Receipt Date: 20071206
  Transmission Date: 20080405
  Serious: Yes (Disabling)
  Sender: FDA-Public Use
  Company Number: 2007S1013026

PATIENT
  Age: 73 Year
  Sex: Female
  Weight: 68 kg

DRUGS (3)
  1. TERBINAFINE HYDROCHLORIDE [Suspect]
     Indication: ONYCHOMYCOSIS
     Dosage: 250 MG;DAILY;ORAL
     Route: 048
     Dates: start: 20070227, end: 20070401
  2. BENDROFLUMETHIAZIDE [Concomitant]
  3. LISINOPRIL [Concomitant]

REACTIONS (4)
  - ANOREXIA [None]
  - DYSGEUSIA [None]
  - PHARYNGOLARYNGEAL PAIN [None]
  - WEIGHT DECREASED [None]
